FAERS Safety Report 13325048 (Version 1)
Quarter: 2017Q1

REPORT INFORMATION
  Report Type: Spontaneous
  Country: PT (occurrence: DE)
  Receive Date: 20170310
  Receipt Date: 20170310
  Transmission Date: 20170428
  Serious: Yes (Hospitalization, Other)
  Sender: FDA-Public Use
  Company Number: PT-SUNOVION-2017SUN001093

PATIENT

DRUGS (4)
  1. RISPERIDONE. [Concomitant]
     Active Substance: RISPERIDONE
     Indication: AGGRESSION
     Dosage: FOR SEVERAL YEARS
     Route: 065
  2. VALPROIC ACID. [Concomitant]
     Active Substance: VALPROIC ACID
     Indication: EPILEPSY
     Dosage: 1500 MG, DAILY
     Route: 048
  3. ZEBINIX [Suspect]
     Active Substance: ESLICARBAZEPINE ACETATE
     Indication: EPILEPSY
     Dosage: 2400 MG, DAILY
     Route: 048
     Dates: start: 2012, end: 2016
  4. LAMOTRIGINE. [Interacting]
     Active Substance: LAMOTRIGINE
     Indication: EPILEPSY
     Dosage: UNK, UNKNOWN
     Route: 065
     Dates: end: 2016

REACTIONS (5)
  - Hyponatraemia [Recovered/Resolved]
  - Drug dose titration not performed [Unknown]
  - Overdose [Unknown]
  - Drug interaction [Unknown]
  - Seizure cluster [Recovered/Resolved]

NARRATIVE: CASE EVENT DATE: 2012
